FAERS Safety Report 9152189 (Version 1)
Quarter: 2013Q1

REPORT INFORMATION
  Report Type: Spontaneous
  Country: US (occurrence: US)
  Receive Date: 20130308
  Receipt Date: 20130308
  Transmission Date: 20140127
  Serious: No
  Sender: FDA-Public Use
  Company Number: US-PFIZER INC-2013077966

PATIENT
  Age: 60 Year
  Sex: Female

DRUGS (1)
  1. PREMARIN [Suspect]
     Indication: MENOPAUSAL SYMPTOMS
     Dosage: UNK

REACTIONS (3)
  - Vulvovaginal discomfort [Unknown]
  - Vulvovaginal pruritus [Unknown]
  - Vulvovaginal pain [Unknown]
